FAERS Safety Report 25600091 (Version 2)
Quarter: 2025Q3

REPORT INFORMATION
  Report Type: Spontaneous
  Country: EU (occurrence: EU)
  Receive Date: 20250724
  Receipt Date: 20250814
  Transmission Date: 20251020
  Serious: Yes (Other)
  Sender: ALKEM
  Company Number: EU-ALKEM LABORATORIES LIMITED-ES-ALKEM-2025-07855

PATIENT
  Age: 67 Year
  Sex: Female

DRUGS (3)
  1. MESALAMINE [Suspect]
     Active Substance: MESALAMINE
     Indication: Irritable bowel syndrome
     Route: 048
  2. FLUOXETINE [Concomitant]
     Active Substance: FLUOXETINE HYDROCHLORIDE
     Indication: Mixed anxiety and depressive disorder
     Route: 065
  3. LORAZEPAM [Concomitant]
     Active Substance: LORAZEPAM
     Indication: Mixed anxiety and depressive disorder
     Route: 065

REACTIONS (6)
  - Pulmonary toxicity [Unknown]
  - Interstitial lung disease [Recovered/Resolved]
  - Lung infiltration [Recovered/Resolved]
  - Respiratory symptom [Recovered/Resolved]
  - Bronchial hyperreactivity [Recovered/Resolved]
  - Respiratory tract infection [Recovered/Resolved]
